FAERS Safety Report 20524718 (Version 1)
Quarter: 2022Q1

REPORT INFORMATION
  Report Type: Spontaneous
  Country: CA (occurrence: CA)
  Receive Date: 20220228
  Receipt Date: 20220228
  Transmission Date: 20220424
  Serious: Yes (Other)
  Sender: FDA-Public Use
  Company Number: None

PATIENT
  Age: 22 Year
  Sex: Male

DRUGS (5)
  1. METHOTREXATE [Suspect]
     Active Substance: METHOTREXATE
     Indication: Crohn^s disease
     Dosage: 1 EVERY 1 WEEKS
     Route: 048
  2. CALCIUM [Concomitant]
     Active Substance: CALCIUM
  3. FOLIC ACID [Concomitant]
     Active Substance: FOLIC ACID
  4. IRON [Concomitant]
     Active Substance: IRON
  5. VITAMIN D [Concomitant]
     Active Substance: VITAMIN D NOS

REACTIONS (8)
  - Abdominal pain [Unknown]
  - Abdominal pain lower [Unknown]
  - Abscess intestinal [Unknown]
  - C-reactive protein increased [Unknown]
  - Constipation [Unknown]
  - Faecal calprotectin increased [Unknown]
  - Drug ineffective [Unknown]
  - Off label use [Unknown]
